FAERS Safety Report 14012383 (Version 3)
Quarter: 2017Q4

REPORT INFORMATION
  Report Type: Spontaneous
  Country: BR (occurrence: BR)
  Receive Date: 20170926
  Receipt Date: 20171030
  Transmission Date: 20180321
  Serious: Yes (Other)
  Sender: FDA-Public Use
  Company Number: PHHY2017BR139615

PATIENT
  Sex: Female
  Weight: 70 kg

DRUGS (1)
  1. ZOLPIDEM [Suspect]
     Active Substance: ZOLPIDEM\ZOLPIDEM TARTRATE
     Indication: INSOMNIA
     Dosage: 1 DF, QD
     Route: 048

REACTIONS (7)
  - Asthenia [Recovering/Resolving]
  - Paraesthesia [Recovering/Resolving]
  - Hypoaesthesia [Recovering/Resolving]
  - Insomnia [Recovering/Resolving]
  - Heart rate decreased [Recovering/Resolving]
  - Hypotension [Recovering/Resolving]
  - Pain in extremity [Recovering/Resolving]
